FAERS Safety Report 8596784-1 (Version None)
Quarter: 2012Q3

REPORT INFORMATION
  Report Type: 
  Country: None (occurrence: None)
  Receive Date: 20120815
  Receipt Date: 20120808
  Transmission Date: 20120928
  Serious: Yes (Other)
  Sender: FDA-Public Use
  Company Number: IN-COVIDIEN/TYCO HEALTHCARE/MALLINCKRODT-T201203069

PATIENT
  Age: 48 Hour
  Sex: Female
  Weight: 2.35 kg

DRUGS (5)
  1. PENNSAID [Suspect]
     Dosage: UNK
  2. METRONIDAZOLE [Suspect]
     Dosage: UNK
  3. ACETAMINOPHEN [Suspect]
     Dosage: UNK
  4. AMOXICILLIN AND CLAVULANATE POTASSIUM [Suspect]
     Dosage: UNK
     Route: 064
  5. RANITIDINE [Suspect]
     Dosage: UNK

REACTIONS (2)
  - RENAL FAILURE [None]
  - FOETAL EXPOSURE DURING PREGNANCY [None]
